FAERS Safety Report 8209142-6 (Version None)
Quarter: 2012Q1

REPORT INFORMATION
  Report Type: 
  Country: None (occurrence: None)
  Receive Date: 20120314
  Receipt Date: 20120305
  Transmission Date: 20120608
  Serious: Yes (Hospitalization)
  Sender: FDA-Public Use
  Company Number: US-BAYER-2011-079864

PATIENT
  Age: 42 Year
  Sex: Female
  Weight: 81.633 kg

DRUGS (3)
  1. YASMIN [Suspect]
     Indication: CONTRACEPTION
     Dosage: UNK
     Dates: start: 20040401, end: 20060401
  2. VINATE II TABLET [Concomitant]
     Dosage: UNK
     Dates: start: 20090601, end: 20100401
  3. PEPCID [Concomitant]
     Indication: GASTROOESOPHAGEAL REFLUX DISEASE
     Dosage: 20 MG, UNK
     Dates: start: 20050401

REACTIONS (9)
  - CHOLECYSTITIS CHRONIC [None]
  - PAIN [None]
  - ANXIETY [None]
  - BILIARY COLIC [None]
  - EMOTIONAL DISTRESS [None]
  - INJURY [None]
  - CHOLELITHIASIS [None]
  - MUSCULOSKELETAL PAIN [None]
  - GASTROOESOPHAGEAL REFLUX DISEASE [None]
